FAERS Safety Report 19998381 (Version 1)
Quarter: 2021Q4

REPORT INFORMATION
  Report Type: Report from Study
  Country: US (occurrence: US)
  Receive Date: 20211026
  Receipt Date: 20211026
  Transmission Date: 20220303
  Serious: Yes (Hospitalization)
  Sender: FDA-Public Use
  Company Number: US-REGENERON PHARMACEUTICALS, INC.-2020-60598

PATIENT

DRUGS (27)
  1. CEMIPLIMAB [Suspect]
     Active Substance: CEMIPLIMAB
     Indication: Prostate cancer metastatic
     Dosage: 350 MG, Q3W
     Route: 042
     Dates: start: 20200720
  2. INVESTIGATIONAL PRODUCT [Suspect]
     Active Substance: INVESTIGATIONAL PRODUCT
     Indication: Prostate cancer metastatic
     Dosage: 1 MG, WEEKLY, DL3 DOSE ESCALATION
     Route: 042
     Dates: start: 20200629, end: 20200727
  3. HYDROCHLOROTHIAZIDE\LISINOPRIL [Concomitant]
     Active Substance: HYDROCHLOROTHIAZIDE\LISINOPRIL
     Indication: Hypertension
     Dosage: 1 TABLET QD
     Route: 048
     Dates: start: 2017
  4. CALCIUM CARBONATE [Concomitant]
     Active Substance: CALCIUM CARBONATE
     Indication: Supplementation therapy
     Dosage: 400 MG, AS NECESSARY
     Route: 048
     Dates: start: 2018
  5. FISH OIL [Concomitant]
     Active Substance: FISH OIL
     Indication: Supplementation therapy
     Dosage: 900 MG, INTERMITTENT
     Route: 048
     Dates: start: 2018
  6. HERBALS\TURMERIC [Concomitant]
     Active Substance: HERBALS\TURMERIC
     Indication: Supplementation therapy
     Dosage: 1 DF, INTERMITTENT
     Route: 048
     Dates: start: 2018
  7. VITAMIN D3 [Concomitant]
     Active Substance: CHOLECALCIFEROL
     Indication: Supplementation therapy
     Dosage: 25 MICROGRAM, INTERMITTENT
     Route: 048
     Dates: start: 2018
  8. LUPRON DEPOT [Concomitant]
     Active Substance: LEUPROLIDE ACETATE
     Indication: Hormone therapy
     Dosage: 3.75 MG, EVERY 6 MONTHS
     Route: 030
     Dates: start: 20180628
  9. CABERGOLINE [Concomitant]
     Active Substance: CABERGOLINE
     Indication: Erectile dysfunction
     Dosage: 0.5 MG, TWICE A WEEK
     Route: 048
     Dates: start: 2019
  10. PROCHLORPERAZINE EDISYLATE [Concomitant]
     Active Substance: PROCHLORPERAZINE EDISYLATE
     Indication: Nausea
     Dosage: 10 MG, AS NECESSARY
     Route: 048
     Dates: start: 2020
  11. ZOFRAN [Concomitant]
     Active Substance: ONDANSETRON HYDROCHLORIDE
     Indication: Nausea
     Dosage: 8 MG, AS NECESSARY
     Route: 048
     Dates: start: 2020
  12. CYCLOBENZAPRINE [Concomitant]
     Active Substance: CYCLOBENZAPRINE
     Indication: Muscle spasms
     Dosage: 10 MG, AS NECESSARY
     Route: 048
     Dates: start: 202003
  13. AMBIEN [Concomitant]
     Active Substance: ZOLPIDEM TARTRATE
     Indication: Insomnia
     Dosage: 5 MG, AS NECESSARY
     Route: 048
     Dates: start: 202005
  14. ZOLEDRONIC ACID [Concomitant]
     Active Substance: ZOLEDRONIC ACID
     Indication: Metastasis
     Dosage: 4 MG, MONTHLY
     Route: 042
     Dates: start: 202005
  15. LYRICA [Concomitant]
     Active Substance: PREGABALIN
     Indication: Neuropathy peripheral
     Dosage: 25 MG, AS NECESSARY
     Route: 048
     Dates: start: 20200708
  16. ATIVAN [Concomitant]
     Active Substance: LORAZEPAM
     Indication: Nausea
     Dosage: 1 MG, AS NECESSARY
     Route: 048
     Dates: start: 20200615
  17. PREDNISONE [Concomitant]
     Active Substance: PREDNISONE
     Indication: Nausea
     Dosage: 5 MG, AS NECESSARY
     Route: 048
     Dates: start: 20200615
  18. PREDNISONE [Concomitant]
     Active Substance: PREDNISONE
     Indication: Fatigue
  19. TYLENOL EXTRA STRENGTH [Concomitant]
     Active Substance: ACETAMINOPHEN
     Indication: Pain
     Dosage: 1000 MG, AS NECESSARY
     Route: 048
     Dates: start: 20200623
  20. MIRALAX [Concomitant]
     Active Substance: POLYETHYLENE GLYCOL 3350
     Indication: Constipation
     Dosage: 17 G, AS NECESSARY
     Route: 048
     Dates: start: 20200630
  21. FLEET ENEMA [Concomitant]
     Active Substance: SODIUM PHOSPHATE, DIBASIC\SODIUM PHOSPHATE, MONOBASIC
     Indication: Constipation
     Dosage: 118 ML, AS NECESSARY
     Route: 054
     Dates: start: 20200704
  22. MAGNESIUM CITRATE [Concomitant]
     Active Substance: MAGNESIUM CITRATE
     Indication: Constipation
     Dosage: 100 MG, AS NECESSARY
     Route: 048
     Dates: start: 20200704
  23. SENNA LEAF [Concomitant]
     Active Substance: SENNA LEAF
     Indication: Constipation
     Dosage: 2 TABLET, BID
     Route: 048
     Dates: start: 20200704
  24. TRIMIX (ALPROSTADIL\PAPAVERINE\PHENTOLAMINE) [Concomitant]
     Active Substance: ALPROSTADIL\PAPAVERINE\PHENTOLAMINE
     Indication: Erectile dysfunction
     Dosage: 6 ML, AS NECESSARY
     Route: 058
     Dates: start: 201809
  25. OLANZAPINE [Concomitant]
     Active Substance: OLANZAPINE
     Indication: Prophylaxis of nausea and vomiting
     Dosage: 5 MG, QD
     Route: 048
     Dates: start: 20200723
  26. OXYGEN [Concomitant]
     Active Substance: OXYGEN
     Indication: Hypoxia
     Dosage: 2L, AS NECESSARY
     Route: 055
     Dates: start: 20200708
  27. POTASSIUM CHLORIDE [Concomitant]
     Active Substance: POTASSIUM CHLORIDE
     Indication: Prophylaxis
     Dosage: 20 MEQ, QD
     Route: 048
     Dates: start: 20200713, end: 20200725

REACTIONS (1)
  - Pain [Recovered/Resolved]

NARRATIVE: CASE EVENT DATE: 20200802
